FAERS Safety Report 7431527-6 (Version None)
Quarter: 2011Q2

REPORT INFORMATION
  Report Type: 
  Country: None (occurrence: None)
  Receive Date: 20110422
  Receipt Date: 20110131
  Transmission Date: 20111010
  Serious: No
  Sender: FDA-Public Use
  Company Number: US-TEVA-265565USA

PATIENT
  Sex: Female
  Weight: 72.64 kg

DRUGS (1)
  1. PLAN B ONE-STEP [Suspect]
     Indication: POST COITAL CONTRACEPTION
     Dosage: 1.5 MILLIGRAM;
     Route: 048
     Dates: start: 20110112, end: 20110112

REACTIONS (6)
  - MENSTRUATION IRREGULAR [None]
  - DIZZINESS [None]
  - HYPERHIDROSIS [None]
  - PRESYNCOPE [None]
  - ABDOMINAL PAIN LOWER [None]
  - NAUSEA [None]
